FAERS Safety Report 4383885-7 (Version None)
Quarter: 2004Q2

REPORT INFORMATION
  Report Type: 
  Country: None (occurrence: None)
  Receive Date: 20040617
  Receipt Date: 20040603
  Transmission Date: 20050107
  Serious: Yes (Disabling)
  Sender: FDA-Public Use
  Company Number: 2004217092DE

PATIENT
  Age: 68 Year
  Sex: Female
  Weight: 82 kg

DRUGS (2)
  1. AROMASIN [Suspect]
     Indication: BREAST CANCER
     Dosage: 25 MG, QD, ORAL
     Route: 048
     Dates: start: 20030205
  2. ATORVASTATIN CALCIUM [Suspect]
     Indication: HYPERCHOLESTEROLAEMIA
     Dosage: ORAL
     Route: 048

REACTIONS (2)
  - POLYNEUROPATHY [None]
  - VERTIGO [None]
